FAERS Safety Report 20727985 (Version 4)
Quarter: 2022Q4

REPORT INFORMATION
  Report Type: Report from Study
  Country: US (occurrence: US)
  Receive Date: 20220419
  Receipt Date: 20221006
  Transmission Date: 20230113
  Serious: Yes (Hospitalization)
  Sender: FDA-Public Use
  Company Number: US-ABBVIE-22K-163-4362888-00

PATIENT
  Sex: Male

DRUGS (1)
  1. IMBRUVICA [Suspect]
     Active Substance: IBRUTINIB
     Indication: Chronic lymphocytic leukaemia
     Route: 048
     Dates: start: 20220308

REACTIONS (4)
  - COVID-19 [Unknown]
  - Pulmonary embolism [Unknown]
  - Pneumonia [Unknown]
  - Haemoglobin increased [Recovering/Resolving]

NARRATIVE: CASE EVENT DATE: 20220101
